FAERS Safety Report 5594181-4 (Version None)
Quarter: 2008Q1

REPORT INFORMATION
  Report Type: 
  Country: None (occurrence: None)
  Receive Date: 20080115
  Receipt Date: 20080108
  Transmission Date: 20080703
  Serious: Yes (Other)
  Sender: FDA-Public Use
  Company Number: 2008000768

PATIENT

DRUGS (1)
  1. LISTERINE WHITENING QUICK DISSOLVING STRIPS (NO ACTIVE INGRDIENT) [Suspect]
     Dosage: UNSPECIFIED, ORAL
     Route: 048
     Dates: start: 20071101

REACTIONS (1)
  - PARAESTHESIA ORAL [None]
